FAERS Safety Report 5898377-3 (Version None)
Quarter: 2008Q3

REPORT INFORMATION
  Report Type: 
  Country: None (occurrence: None)
  Receive Date: 20080925
  Receipt Date: 20071005
  Transmission Date: 20090109
  Serious: No
  Sender: FDA-Public Use
  Company Number: A0686350A

PATIENT
  Age: 39 Year
  Sex: Female

DRUGS (2)
  1. WELLBUTRIN XL [Suspect]
     Indication: DEPRESSION
     Dosage: 300MG PER DAY
     Route: 048
     Dates: start: 20070101, end: 20070401
  2. DIURETIC [Concomitant]

REACTIONS (3)
  - ALCOHOL INTOLERANCE [None]
  - DECREASED APPETITE [None]
  - INSOMNIA [None]
